FAERS Safety Report 6863197-X (Version None)
Quarter: 2010Q3

REPORT INFORMATION
  Report Type: 
  Country: None (occurrence: None)
  Receive Date: 20100721
  Receipt Date: 20100706
  Transmission Date: 20110219
  Serious: Yes (Hospitalization)
  Sender: FDA-Public Use
  Company Number: GB-GENENTECH-302514

PATIENT
  Sex: Female

DRUGS (7)
  1. LUCENTIS [Suspect]
     Indication: VISUAL ACUITY REDUCED
     Dosage: UNK
     Route: 031
     Dates: start: 20090417
  2. CANDESARTAN [Concomitant]
     Indication: PRODUCT USED FOR UNKNOWN INDICATION
  3. OMEPRAZOLE [Concomitant]
     Indication: PRODUCT USED FOR UNKNOWN INDICATION
  4. LATANOPROST [Concomitant]
     Indication: PRODUCT USED FOR UNKNOWN INDICATION
  5. MOXONIDINE [Concomitant]
     Indication: PRODUCT USED FOR UNKNOWN INDICATION
  6. SIMVASTIN [Concomitant]
     Indication: PRODUCT USED FOR UNKNOWN INDICATION
  7. PROPRANOLOL [Concomitant]
     Indication: PRODUCT USED FOR UNKNOWN INDICATION

REACTIONS (6)
  - CARDIAC DISORDER [None]
  - EYE DISORDER [None]
  - FEELING ABNORMAL [None]
  - MULTIPLE MYELOMA [None]
  - PULMONARY EMBOLISM [None]
  - RENAL FAILURE CHRONIC [None]
